FAERS Safety Report 6129794-4 (Version None)
Quarter: 2009Q1

REPORT INFORMATION
  Report Type: 
  Country: None (occurrence: None)
  Receive Date: 20090324
  Receipt Date: 20090311
  Transmission Date: 20090719
  Serious: Yes (Hospitalization)
  Sender: FDA-Public Use
  Company Number: US-SANOFI-SYNTHELABO-F03200900016

PATIENT
  Sex: Male
  Weight: 66.2 kg

DRUGS (11)
  1. LEUCOVORIN CALCIUM [Suspect]
     Indication: COLON CANCER METASTATIC
     Route: 042
     Dates: start: 20060302, end: 20060302
  2. LORTAB [Concomitant]
     Indication: DRUG USE FOR UNKNOWN INDICATION
     Dosage: UNK
     Route: 065
     Dates: start: 20060302
  3. PHENERGAN EXPECTORANT [Concomitant]
     Indication: DRUG USE FOR UNKNOWN INDICATION
     Dosage: UNK
     Route: 065
     Dates: start: 20060102
  4. LEXAPRO [Concomitant]
     Indication: DRUG USE FOR UNKNOWN INDICATION
     Dosage: UNK
     Route: 065
     Dates: start: 20060126
  5. FERROUS SULFATE TAB [Concomitant]
     Indication: DRUG USE FOR UNKNOWN INDICATION
     Dosage: UNK
     Route: 065
     Dates: start: 20051101
  6. FLUOROURACIL [Suspect]
     Indication: COLON CANCER METASTATIC
     Route: 042
     Dates: start: 20060302, end: 20060302
  7. FLUOROURACIL [Suspect]
     Route: 042
     Dates: start: 20060302, end: 20060305
  8. SU-011,248 [Suspect]
     Indication: COLON CANCER METASTATIC
     Route: 048
     Dates: start: 20060302, end: 20060313
  9. SU-011,248 [Suspect]
     Route: 048
     Dates: start: 20060204, end: 20060216
  10. OXALIPLATIN [Suspect]
     Indication: COLON CANCER METASTATIC
     Dosage: 64 MG/M2 WITH A TOTAL DAILY DOSE OF 116.2MG Q2W
     Route: 042
     Dates: start: 20060302, end: 20060302
  11. TESSALON [Concomitant]
     Indication: DRUG USE FOR UNKNOWN INDICATION
     Dosage: UNK
     Route: 065
     Dates: start: 20060302

REACTIONS (4)
  - BLOOD BILIRUBIN INCREASED [None]
  - FEBRILE NEUTROPENIA [None]
  - JAUNDICE CHOLESTATIC [None]
  - PYREXIA [None]
